FAERS Safety Report 4607326-7 (Version None)
Quarter: 2005Q1

REPORT INFORMATION
  Report Type: 
  Country: None (occurrence: None)
  Receive Date: 20050309
  Receipt Date: 20050223
  Transmission Date: 20050727
  Serious: Yes (Other)
  Sender: FDA-Public Use
  Company Number: 2005037160

PATIENT
  Age: 22 Year
  Sex: Female

DRUGS (4)
  1. BENYLIN (DIPHENHYDRAMINE) [Suspect]
     Indication: INSOMNIA
     Dosage: ORAL
     Route: 048
  2. DIPHENHYDRAMINE HCL [Suspect]
  3. NIGHT NURSE (DEXTROMETHORPHAN, PARACETAMOL, PROMETHAZINE HYDROCHLORIDE [Suspect]
  4. ZOLPIDEM TARTRATE [Concomitant]

REACTIONS (4)
  - ANXIETY [None]
  - ASTHENIA [None]
  - DEPRESSION [None]
  - FATIGUE [None]
